FAERS Safety Report 23813220 (Version 1)
Quarter: 2024Q2

REPORT INFORMATION
  Report Type: Spontaneous
  Country: US (occurrence: US)
  Receive Date: 20240503
  Receipt Date: 20240503
  Transmission Date: 20240715
  Serious: Yes (Other)
  Sender: FDA-Public Use
  Company Number: US-GLENMARK PHARMACEUTICALS-2024GMK090383

PATIENT

DRUGS (7)
  1. TACROLIMUS [Suspect]
     Active Substance: TACROLIMUS
     Indication: Immunosuppressant drug therapy
     Dosage: UNK LOW DOSE TACROLIMUS (SERUM TROUGH 2-5 NG/ML)
     Route: 065
  2. TACROLIMUS [Suspect]
     Active Substance: TACROLIMUS
     Dosage: UNK HIGHER THAN THE LOW-DOSE TACROLIMUS ADMINISTERED ON TRIAL (SERUM TROUGH GOAL 2-5 NG/ML).
     Route: 065
  3. PREDNISONE [Suspect]
     Active Substance: PREDNISONE
     Indication: Immunosuppressant drug therapy
     Dosage: 5 MILLIGRAM, OD
     Route: 065
  4. NIVOLUMAB [Suspect]
     Active Substance: NIVOLUMAB
     Indication: Squamous cell carcinoma of skin
     Dosage: 3 MILLIGRAM PER KILOGRAM
     Route: 042
  5. NIVOLUMAB [Suspect]
     Active Substance: NIVOLUMAB
     Dosage: 480 MILLIGRAM, ONCE EVERY 4 WEEKS FOR A TOTAL OF 96 WEEKS
     Route: 042
  6. NIVOLUMAB [Suspect]
     Active Substance: NIVOLUMAB
     Dosage: UNK (MONOTHERAPY)
     Route: 042
  7. IPILIMUMAB [Suspect]
     Active Substance: IPILIMUMAB
     Indication: Squamous cell carcinoma of skin
     Dosage: 1 MILLIGRAM/KILOGRAM
     Route: 042

REACTIONS (2)
  - Squamous cell carcinoma of skin [Unknown]
  - Disease progression [Unknown]
